FAERS Safety Report 8454003-0 (Version None)
Quarter: 2012Q2

REPORT INFORMATION
  Report Type: 
  Country: None (occurrence: None)
  Receive Date: 20120323
  Receipt Date: 20111011
  Transmission Date: 20120825
  Serious: Yes (Other)
  Sender: FDA-Public Use
  Company Number: 163-21880-11091961

PATIENT
  Age: 67 Year
  Sex: Female

DRUGS (3)
  1. DECADRON [Suspect]
     Indication: PRODUCT USED FOR UNKNOWN INDICATION
  2. REVLIMID [Suspect]
     Indication: MULTIPLE MYELOMA
     Dosage: 15 MG, ON SUNDAY, WEDNESDAY, AND FRIDAY, PO; 15 MG, ON SUNDAY, WEDNESDAY, AND FRIDAY, PO
     Route: 048
     Dates: start: 20080820, end: 20090615
  3. REVLIMID [Suspect]
     Indication: MULTIPLE MYELOMA
     Dosage: 15 MG, ON SUNDAY, WEDNESDAY, AND FRIDAY, PO; 15 MG, ON SUNDAY, WEDNESDAY, AND FRIDAY, PO
     Route: 048
     Dates: start: 20091027

REACTIONS (1)
  - CATARACT [None]
